FAERS Safety Report 24451662 (Version 1)
Quarter: 2024Q4

REPORT INFORMATION
  Report Type: Spontaneous
  Country: AU (occurrence: AU)
  Receive Date: 20241017
  Receipt Date: 20241017
  Transmission Date: 20250114
  Serious: Yes (Hospitalization, Other)
  Sender: BAXTER
  Company Number: AU-BAXTER-2024BAX022750

PATIENT
  Age: 85 Year
  Sex: Female

DRUGS (2)
  1. SODIUM CHLORIDE [Suspect]
     Active Substance: SODIUM CHLORIDE
     Indication: Medication dilution
     Dosage: 0.9%, INFUSION, CEMIPLIMAB (LIBTAYO) 350MG IN 66ML TOTAL VOLUME SODIUM CHLORIDE 0.9% VIAFLO BAG
     Route: 042
     Dates: start: 20240801, end: 20240801
  2. LIBTAYO [Suspect]
     Active Substance: CEMIPLIMAB-RWLC
     Dosage: 1 BAG, CEMIPLIMAB (LIBTAYO) 350MG IN 66ML TOTAL VOLUME SODIUM CHLORIDE 0.9% VIAFLO BAG
     Route: 042
     Dates: start: 20240801, end: 20240801

REACTIONS (6)
  - Erythema [Recovered/Resolved]
  - Facial discomfort [Recovered/Resolved]
  - Gastrointestinal disorder [Recovered/Resolved]
  - Dizziness [Recovered/Resolved]
  - Back pain [Recovered/Resolved]
  - Dyspnoea [Recovered/Resolved]

NARRATIVE: CASE EVENT DATE: 20240801
